FAERS Safety Report 7321619-4 (Version None)
Quarter: 2011Q1

REPORT INFORMATION
  Report Type: 
  Country: None (occurrence: None)
  Receive Date: 20110228
  Receipt Date: 20100929
  Transmission Date: 20110831
  Serious: No
  Sender: FDA-Public Use
  Company Number: A0878755A

PATIENT
  Sex: Male

DRUGS (1)
  1. VALTREX [Suspect]
     Route: 048

REACTIONS (5)
  - HYPERSENSITIVITY [None]
  - VERTIGO [None]
  - NAUSEA [None]
  - DIZZINESS [None]
  - PERFORMANCE STATUS DECREASED [None]
